FAERS Safety Report 15200960 (Version 1)
Quarter: 2018Q3

REPORT INFORMATION
  Report Type: Spontaneous
  Country: FR (occurrence: FR)
  Receive Date: 20180726
  Receipt Date: 20180726
  Transmission Date: 20181010
  Serious: Yes (Hospitalization)
  Sender: FDA-Public Use
  Company Number: FR-AUROBINDO-AUR-APL-2018-037176

PATIENT
  Age: 33 Year
  Sex: Female

DRUGS (4)
  1. NAPROXEN. [Suspect]
     Active Substance: NAPROXEN
     Indication: INTENTIONAL OVERDOSE
     Dosage: 16 DOSAGE FORM, IN TOTAL
     Route: 048
     Dates: start: 20180527, end: 20180527
  2. XANAX [Suspect]
     Active Substance: ALPRAZOLAM
     Indication: INTENTIONAL OVERDOSE
     Dosage: 8 DOSAGE FORM, ONCE A DAY
     Route: 048
     Dates: start: 20180527, end: 20180527
  3. IBUPROFEN. [Suspect]
     Active Substance: IBUPROFEN
     Indication: INTENTIONAL OVERDOSE
     Dosage: 4 DOSAGE FORM, IN TOTAL
     Route: 048
     Dates: start: 20180527, end: 20180527
  4. ALCOHOL. [Suspect]
     Active Substance: ALCOHOL
     Indication: PRODUCT USED FOR UNKNOWN INDICATION
     Dosage: NP
     Route: 048
     Dates: start: 20180527, end: 20180527

REACTIONS (3)
  - Intentional overdose [Recovered/Resolved]
  - Hyperlipasaemia [Recovered/Resolved]
  - Somnolence [Recovered/Resolved]

NARRATIVE: CASE EVENT DATE: 20180527
